FAERS Safety Report 5633344-6 (Version None)
Quarter: 2008Q1

REPORT INFORMATION
  Report Type: 
  Country: None (occurrence: None)
  Receive Date: 20080221
  Receipt Date: 20080214
  Transmission Date: 20080703
  Serious: Yes (Other)
  Sender: FDA-Public Use
  Company Number: DE-PFIZER INC-2008012134

PATIENT
  Sex: Male
  Weight: 92 kg

DRUGS (1)
  1. XALATAN [Suspect]
     Indication: CATARACT
     Route: 047

REACTIONS (2)
  - CATARACT [None]
  - EYE PRURITUS [None]
